FAERS Safety Report 5261283-1 (Version None)
Quarter: 2007Q1

REPORT INFORMATION
  Report Type: 
  Country: None (occurrence: None)
  Receive Date: 20070309
  Receipt Date: 20070202
  Transmission Date: 20070707
  Serious: Yes (Other)
  Sender: FDA-Public Use
  Company Number: US-PFIZER INC-2007017418

PATIENT

DRUGS (2)
  1. GENOTROPIN [Suspect]
  2. GENOTROPIN [Suspect]

REACTIONS (4)
  - MEDICATION ERROR [None]
  - MOOD SWINGS [None]
  - SUICIDAL IDEATION [None]
  - WEIGHT DECREASED [None]
